FAERS Safety Report 8357849-2 (Version None)
Quarter: 2012Q2

REPORT INFORMATION
  Report Type: 
  Country: None (occurrence: None)
  Receive Date: 20120514
  Receipt Date: 20110906
  Transmission Date: 20120825
  Serious: No
  Sender: FDA-Public Use
  Company Number: US-TEVA-2011004660

PATIENT
  Sex: Male

DRUGS (12)
  1. DEXEDRINE [Concomitant]
  2. MINOCYCLINE HCL [Concomitant]
  3. COMPAZINE [Concomitant]
     Dates: start: 20010101
  4. NUVIGIL [Suspect]
     Indication: FATIGUE
     Route: 048
     Dates: start: 20110725
  5. MORPHINE [Concomitant]
     Dates: start: 20070101
  6. TYROSINE [Concomitant]
     Dates: start: 20110601, end: 20110801
  7. VICODIN [Concomitant]
  8. CYMBALTA [Concomitant]
     Dates: start: 20080101
  9. TRANXENE [Concomitant]
     Dates: start: 20060101
  10. SOMA [Concomitant]
  11. ZANTAC [Concomitant]
  12. PROTONIX [Concomitant]

REACTIONS (6)
  - SKIN DISORDER [None]
  - RASH PUSTULAR [None]
  - ALOPECIA [None]
  - SKIN HAEMORRHAGE [None]
  - BLISTER [None]
  - ACNE [None]
